FAERS Safety Report 25081150 (Version 1)
Quarter: 2025Q1

REPORT INFORMATION
  Report Type: Spontaneous
  Country: US (occurrence: US)
  Receive Date: 20250315
  Receipt Date: 20250315
  Transmission Date: 20250409
  Serious: Yes (unspecified)
  Sender: IMPRIMIS NJOF, LLC
  Company Number: US-Imprimis NJOF, LLC-2172928

PATIENT

DRUGS (1)
  1. DEX-MOXI PF [Suspect]
     Active Substance: DEXAMETHASONE SODIUM PHOSPHATE\MOXIFLOXACIN HYDROCHLORIDE MONOHYDRATE
     Indication: Cataract

REACTIONS (1)
  - Corneal toxicity [Not Recovered/Not Resolved]
